FAERS Safety Report 8808344 (Version 1)
Quarter: 2012Q4

REPORT INFORMATION
  Report Type: Spontaneous
  Country: US (occurrence: None)
  Receive Date: 20120920
  Receipt Date: 20120920
  Transmission Date: 20130627
  Serious: No
  Sender: FDA-Public Use
  Company Number: None

PATIENT
  Age: 48 Year

DRUGS (1)
  1. RITUXAN [Suspect]
     Indication: RHEUMATOID ARTHRITIS
     Dosage: 1000 MG DAILY FOR 2 DAYS IV
     Route: 042
     Dates: start: 20120906, end: 20120906

REACTIONS (3)
  - Throat tightness [None]
  - Rash [None]
  - Drug hypersensitivity [None]
